FAERS Safety Report 7370170-4 (Version None)
Quarter: 2011Q1

REPORT INFORMATION
  Report Type: 
  Country: None (occurrence: None)
  Receive Date: 20110323
  Receipt Date: 20100215
  Transmission Date: 20110831
  Serious: No
  Sender: FDA-Public Use
  Company Number: US-ASTRAZENECA-2010SE06618

PATIENT
  Sex: Female

DRUGS (1)
  1. ZESTRIL [Suspect]
     Route: 048

REACTIONS (1)
  - OROPHARYNGEAL DISCOMFORT [None]
